FAERS Safety Report 23331694 (Version 1)
Quarter: 2023Q4

REPORT INFORMATION
  Report Type: Report from Study
  Country: CO (occurrence: CO)
  Receive Date: 20231222
  Receipt Date: 20231222
  Transmission Date: 20240110
  Serious: Yes (Hospitalization)
  Sender: FDA-Public Use
  Company Number: CO-JNJFOC-20231243484

PATIENT
  Age: 66 Year
  Sex: Female
  Weight: 86 kg

DRUGS (1)
  1. DARATUMUMAB [Suspect]
     Active Substance: DARATUMUMAB
     Indication: Plasma cell myeloma
     Route: 042
     Dates: start: 20230825

REACTIONS (6)
  - Tumour lysis syndrome [Recovering/Resolving]
  - Hyperkalaemia [Recovering/Resolving]
  - Hypercalcaemia [Recovering/Resolving]
  - Decubitus ulcer [Recovering/Resolving]
  - Escherichia urinary tract infection [Recovering/Resolving]
  - Thrombocytopenia [Recovering/Resolving]

NARRATIVE: CASE EVENT DATE: 20231127
